FAERS Safety Report 7743967-6 (Version None)
Quarter: 2011Q3

REPORT INFORMATION
  Report Type: 
  Country: None (occurrence: None)
  Receive Date: 20110912
  Receipt Date: 20110908
  Transmission Date: 20111222
  Serious: Yes (Other)
  Sender: FDA-Public Use
  Company Number: DE-GLAXOSMITHKLINE-D0072644A

PATIENT
  Sex: Female

DRUGS (1)
  1. TOPOTECAN [Suspect]
     Route: 065

REACTIONS (3)
  - NEUROLOGICAL SYMPTOM [None]
  - DISTURBANCE IN ATTENTION [None]
  - DELIRIUM [None]
